FAERS Safety Report 23393502 (Version 1)
Quarter: 2024Q1

REPORT INFORMATION
  Report Type: Spontaneous
  Country: CA (occurrence: CA)
  Receive Date: 20240111
  Receipt Date: 20240111
  Transmission Date: 20240409
  Serious: Yes (Hospitalization)
  Sender: FDA-Public Use
  Company Number: CA-PFIZER INC-PV202400003684

PATIENT
  Age: 78 Year
  Sex: Female

DRUGS (1)
  1. IBRANCE [Suspect]
     Active Substance: PALBOCICLIB
     Dosage: 75 MG, ONCE DAILY FOR 21 DAYS AND 7 DAYS OF BREAK (CYCLE OF 28 DAYS)
     Route: 048
     Dates: start: 20170529

REACTIONS (1)
  - Dementia Alzheimer^s type [Unknown]
